FAERS Safety Report 8501951-9 (Version None)
Quarter: 2012Q2

REPORT INFORMATION
  Report Type: 
  Country: None (occurrence: None)
  Receive Date: 20120405
  Receipt Date: 20110316
  Transmission Date: 20120825
  Serious: Yes (Other)
  Sender: FDA-Public Use
  Company Number: PHHY2011US22929

PATIENT
  Age: 65 Year
  Sex: Female

DRUGS (1)
  1. RECLAST [Suspect]
     Dosage: 5 MG/100ML, INTRAVENOUS
     Route: 042
     Dates: start: 20091216

REACTIONS (3)
  - CHEST DISCOMFORT [None]
  - BLOOD PRESSURE INCREASED [None]
  - HYPERHIDROSIS [None]
